FAERS Safety Report 14377221 (Version 1)
Quarter: 2018Q1

REPORT INFORMATION
  Report Type: Spontaneous
  Country: US (occurrence: US)
  Receive Date: 20180111
  Receipt Date: 20180111
  Transmission Date: 20180509
  Serious: No
  Sender: FDA-Public Use
  Company Number: US-DRREDDYS-USA/USA/17/0086773

PATIENT
  Age: 66 Year
  Sex: Female

DRUGS (3)
  1. NICOTINE TRANSDERMAL PATCHES [Suspect]
     Active Substance: NICOTINE
     Route: 062
  2. NICOTINE TRANSDERMAL PATCHES [Suspect]
     Active Substance: NICOTINE
     Indication: SMOKING CESSATION THERAPY
     Route: 062
     Dates: start: 201610
  3. NICOTINE TRANSDERMAL PATCHES [Suspect]
     Active Substance: NICOTINE
     Route: 062

REACTIONS (1)
  - Inappropriate schedule of drug administration [Unknown]
